FAERS Safety Report 18738925 (Version 1)
Quarter: 2021Q1

REPORT INFORMATION
  Report Type: Spontaneous
  Country: US (occurrence: US)
  Receive Date: 20210114
  Receipt Date: 20210114
  Transmission Date: 20210419
  Serious: No
  Sender: FDA-Public Use
  Company Number: US-ASTRAZENECA-2021A003855

PATIENT
  Sex: Female
  Weight: 50.8 kg

DRUGS (2)
  1. PULMICORT RESPULES [Suspect]
     Active Substance: BUDESONIDE
     Indication: CHRONIC OBSTRUCTIVE PULMONARY DISEASE
     Dosage: 0.5MG/2ML, ONE TREATMENT TWICE A DAY
     Route: 055
  2. PULMICORT RESPULES [Suspect]
     Active Substance: BUDESONIDE
     Indication: ASTHMA
     Dosage: 0.5MG/2ML, ONE TREATMENT TWICE A DAY
     Route: 055

REACTIONS (4)
  - Oropharyngeal discomfort [Recovering/Resolving]
  - Product use issue [Unknown]
  - Blister [Recovering/Resolving]
  - Speech disorder [Recovering/Resolving]
